FAERS Safety Report 11761242 (Version 1)
Quarter: 2015Q4

REPORT INFORMATION
  Report Type: Report from Study
  Country: US (occurrence: US)
  Receive Date: 20151120
  Receipt Date: 20151120
  Transmission Date: 20160304
  Serious: Yes (Other)
  Sender: FDA-Public Use
  Company Number: US-ABBVIE-15K-163-1500965-00

PATIENT
  Sex: Male

DRUGS (1)
  1. HUMIRA [Suspect]
     Active Substance: ADALIMUMAB
     Indication: PSORIASIS
     Route: 058
     Dates: end: 201406

REACTIONS (7)
  - Pulmonary sarcoidosis [Not Recovered/Not Resolved]
  - Arthropathy [Unknown]
  - Cardiac sarcoidosis [Not Recovered/Not Resolved]
  - Lung infection [Recovered/Resolved]
  - Arthralgia [Recovering/Resolving]
  - Lymphadenopathy [Unknown]
  - Bradycardia [Not Recovered/Not Resolved]
